FAERS Safety Report 9866142 (Version 1)
Quarter: 2014Q1

REPORT INFORMATION
  Report Type: Spontaneous
  Country: US (occurrence: US)
  Receive Date: 20140203
  Receipt Date: 20140203
  Transmission Date: 20141002
  Serious: No
  Sender: FDA-Public Use
  Company Number: US-ALLERGAN-1315784US

PATIENT
  Age: 60 Year
  Sex: Female

DRUGS (5)
  1. RESTASIS [Suspect]
     Indication: DRY EYE
     Dosage: 2 GTT, QPM
     Route: 047
     Dates: start: 201307
  2. RESTASIS [Suspect]
     Dosage: 2 GTT, BID
     Route: 047
     Dates: start: 201304
  3. PATADAY [Concomitant]
     Indication: HYPERSENSITIVITY
     Dosage: UNK UNK, PRN
  4. REFRESH OPTIVE [Concomitant]
     Indication: DRY EYE
     Dosage: UNK, PRN
  5. OPTIFREE REWETTING DROPS [Concomitant]
     Indication: PRODUCT USED FOR UNKNOWN INDICATION
     Dosage: UNK
     Dates: start: 20131006

REACTIONS (3)
  - Inappropriate schedule of drug administration [Unknown]
  - Eye discharge [Not Recovered/Not Resolved]
  - Vision blurred [Not Recovered/Not Resolved]
